FAERS Safety Report 23406037 (Version 1)
Quarter: 2024Q1

REPORT INFORMATION
  Report Type: Spontaneous
  Country: US (occurrence: None)
  Receive Date: 20240114
  Receipt Date: 20240114
  Transmission Date: 20240410
  Serious: Yes (Life-Threatening, Hospitalization, Disabling, Other)
  Sender: FDA-Public Use
  Company Number: None

PATIENT
  Age: 75 Year
  Sex: Male
  Weight: 65.25 kg

DRUGS (7)
  1. AVASTIN [Suspect]
     Active Substance: BEVACIZUMAB
     Indication: Neovascular age-related macular degeneration
     Dates: start: 20230208
  2. EYLEA [Suspect]
     Active Substance: AFLIBERCEPT
     Indication: Therapy change
     Dosage: INJECTED INTO THE EYE
     Route: 050
     Dates: start: 20230908, end: 20231008
  3. Vitamins for my eyes [Concomitant]
  4. Vit. D3 [Concomitant]
  5. LEVOCARNITINE [Concomitant]
     Active Substance: LEVOCARNITINE
  6. Vit. Bs [Concomitant]
  7. Centrum Mutli-vitamin [Concomitant]

REACTIONS (12)
  - Off label use [None]
  - Cerebrovascular accident [None]
  - Headache [None]
  - Nausea [None]
  - Blood pressure increased [None]
  - Dysphagia [None]
  - Balance disorder [None]
  - Body temperature increased [None]
  - Strabismus [None]
  - Lateral medullary syndrome [None]
  - Chest pain [None]
  - Product communication issue [None]

NARRATIVE: CASE EVENT DATE: 20230323
